FAERS Safety Report 21274907 (Version 2)
Quarter: 2022Q3

REPORT INFORMATION
  Report Type: Spontaneous
  Country: JP (occurrence: JP)
  Receive Date: 20220831
  Receipt Date: 20220920
  Transmission Date: 20221027
  Serious: Yes (Hospitalization, Other)
  Sender: FDA-Public Use
  Company Number: JP-BAYER-2022A118234

PATIENT
  Age: 9 Decade
  Sex: Male

DRUGS (1)
  1. IOPAMIRON [Suspect]
     Active Substance: IOPAMIDOL
     Indication: Diagnostic procedure
     Dosage: 300MG/100ML, ONCE
     Dates: start: 20220822, end: 20220822

REACTIONS (2)
  - Vena cava thrombosis [None]
  - Cardiac arrest [Unknown]

NARRATIVE: CASE EVENT DATE: 20220822
